FAERS Safety Report 14016607 (Version 3)
Quarter: 2017Q4

REPORT INFORMATION
  Report Type: Spontaneous
  Country: CA (occurrence: CA)
  Receive Date: 20170927
  Receipt Date: 20171016
  Transmission Date: 20180321
  Serious: Yes (Other)
  Sender: FDA-Public Use
  Company Number: CA-PFIZER INC-2016388590

PATIENT
  Age: 62 Year
  Sex: Female

DRUGS (3)
  1. XELJANZ [Suspect]
     Active Substance: TOFACITINIB CITRATE
     Dosage: 5 MG, 2X/DAY
     Route: 048
     Dates: start: 20170823
  2. PREDNISONE. [Concomitant]
     Active Substance: PREDNISONE
     Dosage: 10 MG, DAILY
     Dates: end: 201607
  3. XELJANZ [Suspect]
     Active Substance: TOFACITINIB CITRATE
     Indication: RHEUMATOID ARTHRITIS
     Dosage: 5 MG, TWICE DAILY
     Route: 048
     Dates: start: 201607, end: 201704

REACTIONS (7)
  - Lower respiratory tract infection [Recovered/Resolved]
  - Pain in extremity [Not Recovered/Not Resolved]
  - Fatigue [Recovering/Resolving]
  - Arthralgia [Not Recovered/Not Resolved]
  - Infection [Unknown]
  - Lung infection [Recovered/Resolved]
  - Energy increased [Unknown]

NARRATIVE: CASE EVENT DATE: 20160801
